FAERS Safety Report 20596559 (Version 2)
Quarter: 2022Q1

REPORT INFORMATION
  Report Type: Report from Study
  Country: NO (occurrence: NO)
  Receive Date: 20220315
  Receipt Date: 20220328
  Transmission Date: 20220423
  Serious: Yes (Death, Hospitalization)
  Sender: FDA-Public Use
  Company Number: NO-SA-SAC20211108000752

PATIENT
  Sex: Male

DRUGS (9)
  1. BORTEZOMIB [Suspect]
     Active Substance: BORTEZOMIB
     Indication: Plasma cell myeloma
     Dosage: 1.3 MILLIGRAM/SQ. METER, DAY1, 8,15
     Dates: start: 20220104, end: 20220201
  2. BORTEZOMIB [Suspect]
     Active Substance: BORTEZOMIB
     Dosage: 1.3 MILLIGRAM/SQ. METER (1.3 MG/M2, DAY1, 8,15)
     Dates: start: 20211207
  3. DEXAMETHASONE [Suspect]
     Active Substance: DEXAMETHASONE
     Indication: Plasma cell myeloma
     Dosage: UNK
  4. DEXAMETHASONE [Suspect]
     Active Substance: DEXAMETHASONE
     Dosage: 20 MILLIGRAM, QW (20 MG, QW)
     Dates: start: 20211207, end: 20211227
  5. ISATUXIMAB [Suspect]
     Active Substance: ISATUXIMAB
     Indication: Plasma cell myeloma
     Dosage: 10 MG/KG, DAY 1,8, 15, 22 CYCLE 1
     Dates: start: 20211207
  6. ISATUXIMAB [Suspect]
     Active Substance: ISATUXIMAB
     Dosage: 10 MG/KG DAY1, 15
     Dates: start: 20220104, end: 20220201
  7. LENALIDOMIDE [Suspect]
     Active Substance: LENALIDOMIDE
     Indication: Plasma cell myeloma
     Dosage: 25 MILLIGRAM (25 MG, DAY1,21)
     Dates: start: 20220104, end: 20220120
  8. LENALIDOMIDE [Suspect]
     Active Substance: LENALIDOMIDE
     Dosage: 25 MILLIGRAM (1.3 MG/M2, DAY1, 8,15, 21))
     Route: 048
     Dates: start: 20211207
  9. LENALIDOMIDE [Suspect]
     Active Substance: LENALIDOMIDE
     Dosage: 15 MG DAY1-21
     Route: 048
     Dates: start: 20220104, end: 20220125

REACTIONS (8)
  - Arthritis bacterial [Fatal]
  - Hypotension [Fatal]
  - Somnolence [Fatal]
  - Septic shock [Fatal]
  - Hypothermia [Fatal]
  - Fall [Not Recovered/Not Resolved]
  - Bacterial infection [Recovered/Resolved]
  - Infection [Not Recovered/Not Resolved]

NARRATIVE: CASE EVENT DATE: 20211225
